FAERS Safety Report 22006668 (Version 1)
Quarter: 2023Q1

REPORT INFORMATION
  Report Type: Spontaneous
  Country: RO (occurrence: RO)
  Receive Date: 20230217
  Receipt Date: 20230217
  Transmission Date: 20230417
  Serious: Yes (Other)
  Sender: FDA-Public Use
  Company Number: RO-KRKA-RO2023K01112LIT

PATIENT
  Age: 53 Year
  Sex: Female

DRUGS (2)
  1. BISOPROLOL [Suspect]
     Active Substance: BISOPROLOL
     Indication: Hypertension
     Dosage: IN THE EVENING
     Route: 065
  2. SUMATRIPTAN [Suspect]
     Active Substance: SUMATRIPTAN
     Indication: Migraine
     Dosage: NIGHT SHORTLY AFTER BISOPROLOL WAS ADMINISTERED
     Route: 065

REACTIONS (2)
  - Optic ischaemic neuropathy [Unknown]
  - Hypotension [Unknown]
